FAERS Safety Report 8095275-4 (Version None)
Quarter: 2012Q1

REPORT INFORMATION
  Report Type: 
  Country: None (occurrence: None)
  Receive Date: 20120129
  Receipt Date: 20111219
  Transmission Date: 20120608
  Serious: No
  Sender: FDA-Public Use
  Company Number: US-ABBOTT-11P-163-0884806-00

PATIENT
  Age: 71 Year
  Sex: Female

DRUGS (6)
  1. ZOCOR [Concomitant]
     Indication: BLOOD TRIGLYCERIDES
  2. LORAZEPAM [Concomitant]
     Indication: ANXIETY
  3. HUMIRA [Suspect]
     Indication: CROHN'S DISEASE
     Dosage: LOADING DOSE
     Dates: start: 20111208
  4. HYZAAR [Concomitant]
     Indication: BLOOD PRESSURE
     Dosage: 50/12.5MG
  5. PREMARIN [Concomitant]
     Indication: PRODUCT USED FOR UNKNOWN INDICATION
  6. LIALDA [Concomitant]
     Indication: CROHN'S DISEASE
     Dosage: 2 PILLS EVERY MORNING:1.2 GM

REACTIONS (3)
  - FUNGAL INFECTION [None]
  - SKIN ODOUR ABNORMAL [None]
  - HYPERHIDROSIS [None]
